FAERS Safety Report 5062757-9 (Version None)
Quarter: 2006Q3

REPORT INFORMATION
  Report Type: 
  Country: None (occurrence: None)
  Receive Date: 20060724
  Receipt Date: 20060724
  Transmission Date: 20061208
  Serious: Yes (Other)
  Sender: FDA-Public Use
  Company Number: None

PATIENT
  Age: 24 Year
  Sex: Female

DRUGS (1)
  1. DESOXYMETASONE [Suspect]
     Dosage: APPLY BID
     Dates: start: 20060619, end: 20060711

REACTIONS (1)
  - PHARMACEUTICAL PRODUCT COMPLAINT [None]
